FAERS Safety Report 5389243-0 (Version None)
Quarter: 2007Q3

REPORT INFORMATION
  Report Type: 
  Country: None (occurrence: None)
  Receive Date: 20070717
  Receipt Date: 20070712
  Transmission Date: 20080115
  Serious: Yes (Hospitalization)
  Sender: FDA-Public Use
  Company Number: A0663501A

PATIENT
  Age: 42 Year
  Sex: Female
  Weight: 65.4 kg

DRUGS (3)
  1. LAPATINIB [Suspect]
     Dosage: 1500MG PER DAY
     Route: 048
     Dates: start: 20070515
  2. CISPLATIN [Suspect]
     Route: 065
     Dates: end: 20070621
  3. RADIOTHERAPY [Concomitant]

REACTIONS (7)
  - ASTHENIA [None]
  - DECREASED APPETITE [None]
  - DEHYDRATION [None]
  - HYPERGLYCAEMIA [None]
  - HYPERNATRAEMIA [None]
  - RENAL FAILURE [None]
  - SINUS TACHYCARDIA [None]
